FAERS Safety Report 7230773-4 (Version None)
Quarter: 2011Q1

REPORT INFORMATION
  Report Type: 
  Country: None (occurrence: None)
  Receive Date: 20110118
  Receipt Date: 20110105
  Transmission Date: 20110831
  Serious: No
  Sender: FDA-Public Use
  Company Number: US-B.I. PHARMACEUTICALS,INC./RIDGEFIELD-2010-BP-13945BP

PATIENT
  Sex: Female

DRUGS (10)
  1. PRADAXA [Suspect]
     Indication: ATRIAL FIBRILLATION
     Dosage: 300 MG
     Route: 048
     Dates: start: 20101204, end: 20101205
  2. WARFARIN [Concomitant]
  3. TAZTIA [Concomitant]
     Indication: HYPERTENSION
     Dosage: 300 MG
     Route: 048
  4. LISINOPRIL [Concomitant]
     Indication: HYPERTENSION
     Route: 048
  5. PRADAXA [Suspect]
     Indication: ANTICOAGULANT THERAPY
  6. HYDROCHLOROTHIAZIDE [Concomitant]
     Indication: HYPERTENSION
     Dosage: 50 MG
     Route: 048
  7. SIMVASTATIN [Concomitant]
     Indication: BLOOD CHOLESTEROL INCREASED
     Dosage: 80 MG
     Route: 048
  8. HYDRALAZINE HCL [Concomitant]
     Indication: HYPERTENSION
     Dosage: 75 MG
     Route: 048
  9. LEVOTHYROXINE [Concomitant]
     Dosage: 0.25 MG
  10. SOTALOL [Concomitant]
     Indication: ATRIAL FIBRILLATION
     Dosage: 480 MG
     Route: 048

REACTIONS (4)
  - DYSPEPSIA [None]
  - DYSPHAGIA [None]
  - HICCUPS [None]
  - VOMITING [None]
